FAERS Safety Report 9712407 (Version 1)
Quarter: 2013Q4

REPORT INFORMATION
  Report Type: Spontaneous
  Country: US (occurrence: None)
  Receive Date: 20131125
  Receipt Date: 20131125
  Transmission Date: 20140711
  Serious: No
  Sender: FDA-Public Use
  Company Number: None

PATIENT
  Age: 46 Year
  Sex: Female

DRUGS (3)
  1. FLUCONAZOLE [Suspect]
     Indication: FUNGAL INFECTION
     Dosage: 100MG, 1 PILL, 1 DAILY FOR 10 DAYS, MOUTH
     Dates: start: 20131109, end: 20131109
  2. CALCIUM [Concomitant]
  3. WOMEN^S DAILY VITAMIN [Concomitant]

REACTIONS (4)
  - Abdominal pain lower [None]
  - Contusion [None]
  - Headache [None]
  - Feeling abnormal [None]
